FAERS Safety Report 6788159-2 (Version None)
Quarter: 2010Q2

REPORT INFORMATION
  Report Type: 
  Country: None (occurrence: None)
  Receive Date: 20100623
  Receipt Date: 20080131
  Transmission Date: 20101027
  Serious: No
  Sender: FDA-Public Use
  Company Number: US-PFIZER INC-2008010736

PATIENT
  Sex: Male

DRUGS (1)
  1. NICOTROL [Suspect]

REACTIONS (2)
  - HEADACHE [None]
  - VOMITING [None]
